FAERS Safety Report 24276744 (Version 2)
Quarter: 2024Q4

REPORT INFORMATION
  Report Type: Spontaneous
  Country: PT (occurrence: PT)
  Receive Date: 20240903
  Receipt Date: 20241101
  Transmission Date: 20250115
  Serious: Yes (Life-Threatening, Other)
  Sender: ALEXION PHARMACEUTICALS
  Company Number: None

PATIENT
  Age: 46 Year

DRUGS (2)
  1. FASLODEX [Suspect]
     Active Substance: FULVESTRANT
     Indication: Breast cancer
     Dosage: 250 MG/5 ML, 500 MG  COM 1 DOSE ADICIONAL DE 500MG ADMINISTRADA 2 SEMANAS AP?S DOSE INICIAL
  2. FASLODEX [Suspect]
     Active Substance: FULVESTRANT
     Dosage: 250 MG/5 ML, 500 MG  COM 1 DOSE ADICIONAL DE 500MG ADMINISTRADA 2 SEMANAS AP?S DOSE INICIAL

REACTIONS (2)
  - Anaphylactic reaction [Recovered/Resolved]
  - Hyperhidrosis [Recovered/Resolved]
